FAERS Safety Report 7295880-9 (Version None)
Quarter: 2011Q1

REPORT INFORMATION
  Report Type: 
  Country: None (occurrence: None)
  Receive Date: 20110204
  Receipt Date: 20110126
  Transmission Date: 20110831
  Serious: Yes (Other)
  Sender: FDA-Public Use
  Company Number: 815724

PATIENT

DRUGS (2)
  1. METHOTREXATE [Suspect]
     Indication: PRODUCT USED FOR UNKNOWN INDICATION
  2. MABTHERA [Suspect]
     Indication: PRODUCT USED FOR UNKNOWN INDICATION

REACTIONS (5)
  - PULMONARY FIBROSIS [None]
  - MYOCARDIAL INFARCTION [None]
  - HEPATIC CIRRHOSIS [None]
  - TYPE 2 DIABETES MELLITUS [None]
  - SJOGREN'S SYNDROME [None]
